FAERS Safety Report 7989074-9 (Version None)
Quarter: 2011Q4

REPORT INFORMATION
  Report Type: 
  Country: None (occurrence: None)
  Receive Date: 20111219
  Receipt Date: 20111215
  Transmission Date: 20120403
  Serious: Yes (Hospitalization)
  Sender: FDA-Public Use
  Company Number: NL-AMGEN-NLDSP2011066780

PATIENT
  Age: 70 Year
  Sex: Female

DRUGS (11)
  1. DEXAMETHASONE [Concomitant]
     Indication: PROPHYLAXIS
  2. NEULASTA [Suspect]
     Indication: PROPHYLAXIS
  3. DOCETAXEL [Suspect]
     Indication: BREAST CANCER
     Dosage: 132 MG, QD
     Route: 042
     Dates: start: 20110805
  4. CARDIAZEM                          /00489701/ [Concomitant]
     Dosage: UNK
  5. PANTOPRAZOLE [Concomitant]
     Dosage: 20 MG, UNK
  6. DOXORUBICIN HCL [Suspect]
     Indication: BREAST CANCER
     Dosage: 88 MG, QD
     Route: 042
     Dates: start: 20110805
  7. CYCLOPHOSPHAMIDE [Suspect]
     Indication: BREAST CANCER
     Dosage: 880 MG, QD
     Route: 042
     Dates: start: 20110805
  8. ATENOLOL [Concomitant]
     Dosage: 100 MG, UNK
  9. ACETYLSALICYLIC ACID SRT [Concomitant]
     Dosage: UNK
  10. ONDANSETRON [Concomitant]
     Indication: PROPHYLAXIS
  11. SIMVASTATIN [Concomitant]
     Dosage: 20 MG, UNK

REACTIONS (1)
  - PULMONARY EMBOLISM [None]
